FAERS Safety Report 9925083 (Version 2)
Quarter: 2014Q1

REPORT INFORMATION
  Report Type: Spontaneous
  Country: US (occurrence: US)
  Receive Date: 20140226
  Receipt Date: 20140328
  Transmission Date: 20141002
  Serious: No
  Sender: FDA-Public Use
  Company Number: US-PFIZER INC-2014049689

PATIENT
  Age: 73 Year
  Sex: Male

DRUGS (14)
  1. SUTENT [Suspect]
     Indication: RENAL CANCER
     Dosage: 50 MG
     Dates: start: 20140131
  2. SUTENT [Suspect]
     Dosage: DAILY (4 WEEKS ON, 2 WEEKS OFF)
     Route: 048
  3. VESICARE [Concomitant]
     Dosage: 10 MG, AT BEDTIME
     Route: 048
  4. PROMETHAZINE HCL [Concomitant]
     Dosage: UNK
  5. LEVOTHYROXINE SODIUM [Concomitant]
     Dosage: 100 UG, 1X/DAY, BEFORE MEALS PM
     Route: 048
  6. HYDROCHLORIC ACID [Concomitant]
     Dosage: UNK
  7. GABAPENTIN [Concomitant]
     Dosage: 400 MG, UNK (TAKE AS DIRECTED)
     Route: 048
  8. CARAC [Concomitant]
     Dosage: UNK
  9. SIMVASTATIN [Concomitant]
     Dosage: 20 MG, 1X/DAY, BEFORE MEALS AM
     Route: 048
  10. OMEPRAZOLE [Concomitant]
     Dosage: 20 MG, 1X/DAY, BEFORE MEALS PM
     Route: 048
  11. LISINOPRIL [Concomitant]
     Dosage: 40 MG, 1X/DAY, BEFORE MEALS AM
     Route: 048
  12. COUMADIN [Concomitant]
     Dosage: 5 MG, DAILY
     Route: 048
  13. ENOXAPARIN SODIUM [Concomitant]
     Dosage: 120 MG/0.8ML, 2X/DAY
     Route: 058
  14. HYDROCHLOROTHIAZIDE [Concomitant]
     Dosage: 25 MG, 1X/DAY, BEFORE MEALS AM
     Route: 048

REACTIONS (3)
  - Chest pain [Unknown]
  - Fatigue [Unknown]
  - Thrombosis [Recovering/Resolving]
